FAERS Safety Report 23713241 (Version 1)
Quarter: 2024Q2

REPORT INFORMATION
  Report Type: Spontaneous
  Country: JP (occurrence: None)
  Receive Date: 20240405
  Receipt Date: 20240405
  Transmission Date: 20240716
  Serious: Yes (Death, Life-Threatening, Other)
  Sender: FDA-Public Use
  Company Number: 2024A080964

PATIENT
  Age: 100 Year
  Sex: Female

DRUGS (8)
  1. ONDEXXYA [Suspect]
     Active Substance: ANDEXANET ALFA
     Indication: Subdural haematoma
     Dosage: DOSE UNKNOWN
     Route: 042
     Dates: start: 20230328, end: 20230328
  2. XARELTO [Concomitant]
     Active Substance: RIVAROXABAN
     Dosage: DOSE UNKNOWN
     Route: 048
  3. LEVOTHYROXINE [Concomitant]
     Active Substance: LEVOTHYROXINE\LEVOTHYROXINE SODIUM
     Dosage: DOSE UNKNOWN
     Route: 048
  4. ONGLYZA [Concomitant]
     Active Substance: SAXAGLIPTIN HYDROCHLORIDE
     Dosage: DOSE UNKNOWN
     Route: 048
  5. OLMESARTAN MEDOXOMIL [Concomitant]
     Active Substance: OLMESARTAN MEDOXOMIL
     Dosage: DOSE UNKNOWN
     Route: 048
  6. SENNOSIDES [Concomitant]
     Active Substance: SENNOSIDES
     Dosage: DOSE UNKNOWN
  7. HERBALS [Concomitant]
     Active Substance: HERBALS
     Dosage: DOSE UNKNOWN
  8. CILNIDIPINE [Concomitant]
     Active Substance: CILNIDIPINE
     Dosage: DOSE UNKNOWN

REACTIONS (7)
  - Cerebral artery occlusion [Not Recovered/Not Resolved]
  - Haemorrhagic cerebral infarction [Unknown]
  - Death [Fatal]
  - Post stroke epilepsy [Unknown]
  - Coma [Unknown]
  - Respiratory disorder [Unknown]
  - Blood pressure decreased [Unknown]

NARRATIVE: CASE EVENT DATE: 20230301
